FAERS Safety Report 9029812 (Version 3)
Quarter: 2013Q1

REPORT INFORMATION
  Report Type: Spontaneous
  Country: JP (occurrence: JP)
  Receive Date: 20130124
  Receipt Date: 20130327
  Transmission Date: 20140127
  Serious: Yes (Hospitalization, Other)
  Sender: FDA-Public Use
  Company Number: CHNY2013JP000526

PATIENT
  Sex: Female
  Weight: 51 kg

DRUGS (7)
  1. PURSENNID [Suspect]
     Indication: CONSTIPATION
     Dosage: 48 MG, DAILY
     Route: 048
     Dates: start: 20081209
  2. ALOSENN [Suspect]
     Indication: CONSTIPATION
     Dosage: 1 G, QD
     Route: 048
     Dates: start: 20080708
  3. PROTHIADEN [Concomitant]
     Indication: DEPRESSION
     Dosage: 75 MG, UNK
     Route: 048
     Dates: start: 20080924
  4. RHYTHMY [Concomitant]
     Indication: INSOMNIA
     Dosage: 2 MG, UNK
     Route: 048
     Dates: start: 20090915
  5. HALCION [Concomitant]
     Indication: INSOMNIA
     Dosage: 0.25 MG, UNK
     Route: 048
     Dates: start: 20080708
  6. ROHYPNOL [Concomitant]
     Indication: INSOMNIA
     Dosage: 2 MG, UNK
     Route: 048
     Dates: start: 20080826
  7. UBRETID [Concomitant]
     Indication: DYSURIA
     Dosage: 5 MG, UNK
     Route: 048
     Dates: start: 20080924

REACTIONS (2)
  - Pseudo-Bartter syndrome [Recovering/Resolving]
  - Adrenal neoplasm [Unknown]
